FAERS Safety Report 7860064-X (Version None)
Quarter: 2011Q4

REPORT INFORMATION
  Report Type: 
  Country: None (occurrence: None)
  Receive Date: 20111025
  Receipt Date: 20111017
  Transmission Date: 20120403
  Serious: Yes (Hospitalization)
  Sender: FDA-Public Use
  Company Number: 1000024698

PATIENT
  Age: 78 Year
  Sex: Male

DRUGS (12)
  1. SPIRIVA (TIOTROPIUM BROMIDE) (TIOTROPIUM BROMIDE) [Concomitant]
  2. LOVASTATIN [Concomitant]
  3. PREDNISONE [Concomitant]
  4. BABY ASPIRIN (ACETYLSALICYLIC ACID) (ACETYLSALICYLIC ACID) [Concomitant]
  5. DALIRESP [Suspect]
     Indication: CHRONIC OBSTRUCTIVE PULMONARY DISEASE
     Dosage: 500 MCG (500 MCG, 1 IN 1D), ORAL
     Route: 048
     Dates: start: 20110915, end: 20110929
  6. GLYBURIDE [Concomitant]
  7. ADVAIR (SERETIDE) (SERETIDE) [Concomitant]
  8. AMLODIPINE [Concomitant]
  9. ACTOS [Concomitant]
  10. PRILOSEC (OMEPRAZOLE) (OMEPRAZOLE) [Concomitant]
  11. BENAZEPRIL HYDROCHLORIDE [Concomitant]
  12. XANAX [Concomitant]

REACTIONS (6)
  - WEIGHT DECREASED [None]
  - DECREASED APPETITE [None]
  - DEHYDRATION [None]
  - ASTHENIA [None]
  - NAUSEA [None]
  - DIARRHOEA [None]
